FAERS Safety Report 16453141 (Version 1)
Quarter: 2019Q2

REPORT INFORMATION
  Report Type: Spontaneous
  Country: ES (occurrence: ES)
  Receive Date: 20190619
  Receipt Date: 20190619
  Transmission Date: 20190711
  Serious: Yes (Hospitalization)
  Sender: FDA-Public Use
  Company Number: ES-EISAI MEDICAL RESEARCH-EC-2019-057613

PATIENT
  Age: 69 Year
  Sex: Male

DRUGS (1)
  1. FYCOMPA [Suspect]
     Active Substance: PERAMPANEL
     Indication: RESTLESS LEGS SYNDROME
     Dosage: 2-3 TIMES A DAY
     Route: 048

REACTIONS (7)
  - Derealisation [Recovering/Resolving]
  - Sensory disturbance [Recovering/Resolving]
  - Disorientation [Recovering/Resolving]
  - Visual impairment [Recovering/Resolving]
  - Aphasia [Recovering/Resolving]
  - Disturbance in social behaviour [Recovering/Resolving]
  - Speech disorder [Recovering/Resolving]

NARRATIVE: CASE EVENT DATE: 20190407
